FAERS Safety Report 10267813 (Version 1)
Quarter: 2014Q2

REPORT INFORMATION
  Report Type: Spontaneous
  Country: US (occurrence: US)
  Receive Date: 20140630
  Receipt Date: 20140630
  Transmission Date: 20141212
  Serious: No
  Sender: FDA-Public Use
  Company Number: US-GLAXOSMITHKLINE-A1037750A

PATIENT
  Sex: Male

DRUGS (2)
  1. ZANTAC [Suspect]
     Indication: INFLAMMATION
  2. MELOXICAM [Concomitant]

REACTIONS (4)
  - Breast enlargement [Unknown]
  - Nipple pain [Unknown]
  - Biopsy breast [Unknown]
  - Benign breast neoplasm [Unknown]
